FAERS Safety Report 16146599 (Version 1)
Quarter: 2019Q2

REPORT INFORMATION
  Report Type: Spontaneous
  Country: GB (occurrence: GB)
  Receive Date: 20190402
  Receipt Date: 20190402
  Transmission Date: 20190711
  Serious: Yes (Other)
  Sender: FDA-Public Use
  Company Number: GB-TEVA-2019-GB-1031366

PATIENT
  Age: 95 Year
  Sex: Male
  Weight: 68 kg

DRUGS (16)
  1. BUMETANIDE. [Suspect]
     Active Substance: BUMETANIDE
     Dates: start: 20190212
  2. ATENOLOL. [Concomitant]
     Active Substance: ATENOLOL
     Dosage: 1 DOSAGE FORMS DAILY; EACH MORNING
     Dates: start: 20180911
  3. GLYCERYL TRINITRATE [Concomitant]
     Active Substance: NITROGLYCERIN
     Dates: start: 20180911
  4. DOCUSATE SODIUM. [Concomitant]
     Active Substance: DOCUSATE SODIUM
     Dosage: 2 DOSAGE FORMS DAILY;
     Dates: start: 20190102
  5. CASSIA (SENNA ALEXANDRINA) [Concomitant]
     Active Substance: HERBALS\SENNOSIDES
     Dosage: 2 DOSAGE FORMS DAILY; AT NIGHT
     Dates: start: 20190102
  6. DOUBLEBASE [Concomitant]
     Active Substance: ISOPROPYL MYRISTATE\PARAFFIN
     Dates: start: 20180911, end: 20190109
  7. CETIRIZINE [Concomitant]
     Active Substance: CETIRIZINE HYDROCHLORIDE
     Dosage: 1 DOSAGE FORMS DAILY;
     Dates: start: 20190211
  8. TAMSULOSIN HYDROCHLORIDE. [Concomitant]
     Active Substance: TAMSULOSIN HYDROCHLORIDE
     Dosage: 1 DOSAGE FORMS DAILY;
     Dates: start: 20180911, end: 20190102
  9. LAXIDO [Concomitant]
     Active Substance: POLYETHYLENE GLYCOL 3350\POTASSIUM CHLORIDE\SODIUM BICARBONATE\SODIUM CHLORIDE
     Dosage: 3 DOSAGE FORMS DAILY;
     Dates: start: 20190118
  10. OLIVE OIL [Concomitant]
     Active Substance: OLIVE OIL
     Dosage: USE AS DIRECTED
     Dates: start: 20190205
  11. FLUCLOXACILLIN [Concomitant]
     Active Substance: FLUCLOXACILLIN
     Dosage: 4 DOSAGE FORMS DAILY;
     Dates: start: 20190111, end: 20190118
  12. FUROSEMIDE. [Suspect]
     Active Substance: FUROSEMIDE
     Dosage: 1 DOSAGE FORMS DAILY; EACH MORNING
     Dates: start: 20190212
  13. MESALAZINE [Concomitant]
     Active Substance: MESALAMINE
     Dosage: 4 DOSAGE FORMS DAILY;
     Dates: start: 20180911, end: 20190109
  14. OPTIFLO C [Concomitant]
     Dosage: USE AS DIRECTED
     Dates: start: 20190112, end: 20190209
  15. OMEPRAZOLE. [Concomitant]
     Active Substance: OMEPRAZOLE
     Dosage: 1 DOSAGE FORMS DAILY;
     Dates: start: 20180911, end: 20190222
  16. PENTASA [Concomitant]
     Active Substance: MESALAMINE
     Dosage: 4 DOSAGE FORMS DAILY;
     Dates: start: 20181224

REACTIONS (3)
  - Erythema [Recovering/Resolving]
  - Pallor [Unknown]
  - Rash macular [Recovering/Resolving]

NARRATIVE: CASE EVENT DATE: 20190212
